FAERS Safety Report 5234649-3 (Version None)
Quarter: 2007Q1

REPORT INFORMATION
  Report Type: 
  Country: None (occurrence: None)
  Receive Date: 20070209
  Receipt Date: 20070129
  Transmission Date: 20070707
  Serious: Yes (Hospitalization, Other)
  Sender: FDA-Public Use
  Company Number: US-ELI_LILLY_AND_COMPANY-US200701006007

PATIENT
  Age: 50 Year
  Sex: Male

DRUGS (2)
  1. HUMALOG [Suspect]
     Indication: DIABETES MELLITUS
     Dosage: UNK, UNKNOWN
  2. HUMALOG [Suspect]
     Dosage: UNK, UNKNOWN
     Route: 058
     Dates: start: 20030101

REACTIONS (12)
  - AMPUTATION [None]
  - BLOOD GLUCOSE DECREASED [None]
  - BLOOD GLUCOSE INCREASED [None]
  - COELIAC DISEASE [None]
  - CORONARY ARTERY DISEASE [None]
  - GASTRIC DISORDER [None]
  - GLYCOSYLATED HAEMOGLOBIN INCREASED [None]
  - INJECTION SITE SCAR [None]
  - MYOCARDIAL INFARCTION [None]
  - NERVE INJURY [None]
  - PERIPHERAL VASCULAR DISORDER [None]
  - THROMBOSIS [None]
